FAERS Safety Report 7733029-6 (Version None)
Quarter: 2011Q3

REPORT INFORMATION
  Report Type: 
  Country: None (occurrence: None)
  Receive Date: 20110902
  Receipt Date: 20110902
  Transmission Date: 20111222
  Serious: Yes (Hospitalization, Disabling)
  Sender: FDA-Public Use
  Company Number: None

PATIENT
  Age: 56 Year
  Sex: Female
  Weight: 65.7716 kg

DRUGS (1)
  1. CALCITONIN SALMON [Suspect]
     Indication: OSTEOPOROSIS
     Dosage: 1 SPRAY 3.7 ML DAILY
     Route: 045
     Dates: start: 20090101, end: 20110701

REACTIONS (2)
  - PERONEAL NERVE PALSY [None]
  - MUSCULAR WEAKNESS [None]
